FAERS Safety Report 5983432-X (Version None)
Quarter: 2008Q4

REPORT INFORMATION
  Report Type: 
  Country: None (occurrence: None)
  Receive Date: 20081205
  Receipt Date: 20081205
  Transmission Date: 20090506
  Serious: No
  Sender: FDA-Public Use
  Company Number: None

PATIENT
  Sex: Female
  Weight: 77.1115 kg

DRUGS (3)
  1. CEFDINIR [Suspect]
     Indication: INFLUENZA
     Dosage: 1 CAPSULE 2X DAILY X 10 DAYS PO
     Route: 048
     Dates: start: 20081114, end: 20081115
  2. CEFDINIR [Suspect]
     Indication: PYREXIA
     Dosage: 1 CAPSULE 2X DAILY X 10 DAYS PO
     Route: 048
     Dates: start: 20081114, end: 20081115
  3. CEFDINIR [Suspect]
     Indication: VERTIGO
     Dosage: 1 CAPSULE 2X DAILY X 10 DAYS PO
     Route: 048
     Dates: start: 20081114, end: 20081115

REACTIONS (4)
  - GLOSSODYNIA [None]
  - INSOMNIA [None]
  - LIP SWELLING [None]
  - SWELLING FACE [None]
